FAERS Safety Report 22102370 (Version 1)
Quarter: 2023Q1

REPORT INFORMATION
  Report Type: Report from Study
  Country: CO (occurrence: CO)
  Receive Date: 20230316
  Receipt Date: 20230316
  Transmission Date: 20230418
  Serious: Yes (Other)
  Sender: FDA-Public Use
  Company Number: CO-002147023-NVSC2020CO147853

PATIENT
  Sex: Male
  Weight: 88 kg

DRUGS (2)
  1. TASIGNA [Suspect]
     Active Substance: NILOTINIB
     Indication: Chronic myeloid leukaemia
     Dosage: 300 MG, Q12H
     Route: 048
     Dates: start: 20200504
  2. TASIGNA [Suspect]
     Active Substance: NILOTINIB
     Dosage: 600 MG, QD
     Route: 048

REACTIONS (15)
  - Chronic graft versus host disease [Unknown]
  - Discomfort [Unknown]
  - Mood altered [Unknown]
  - Laboratory test abnormal [Unknown]
  - Cardiac disorder [Unknown]
  - Depressed mood [Unknown]
  - Nausea [Unknown]
  - Fatigue [Unknown]
  - Arthralgia [Unknown]
  - Diarrhoea [Unknown]
  - Headache [Unknown]
  - Bone pain [Unknown]
  - Malaise [Unknown]
  - Feeling abnormal [Unknown]
  - Hypotension [Unknown]
